FAERS Safety Report 12078593 (Version 1)
Quarter: 2016Q1

REPORT INFORMATION
  Report Type: Spontaneous
  Country: FR (occurrence: FR)
  Receive Date: 20160216
  Receipt Date: 20160216
  Transmission Date: 20160526
  Serious: Yes (Hospitalization)
  Sender: FDA-Public Use
  Company Number: FR-ASTRAZENECA-2016SE15840

PATIENT
  Age: 87 Year
  Sex: Female
  Weight: 60 kg

DRUGS (10)
  1. CRESTOR [Suspect]
     Active Substance: ROSUVASTATIN CALCIUM
     Indication: HYPERCHOLESTEROLAEMIA
     Route: 048
     Dates: start: 20160114, end: 20160118
  2. KARDEGIC [Concomitant]
     Active Substance: ASPIRIN LYSINE
     Dates: start: 20160114
  3. NEURONTIN [Suspect]
     Active Substance: GABAPENTIN
     Indication: PAIN
     Route: 048
     Dates: start: 20160114, end: 20160118
  4. PAROXETINE [Concomitant]
     Active Substance: PAROXETINE\PAROXETINE HYDROCHLORIDE
  5. OMNIPAQUE [Suspect]
     Active Substance: IOHEXOL
     Indication: X-RAY
     Route: 042
     Dates: start: 20160114
  6. DOLIPRANE [Concomitant]
     Active Substance: ACETAMINOPHEN
  7. RAMIPRIL. [Concomitant]
     Active Substance: RAMIPRIL
     Dates: start: 20160114, end: 20160118
  8. INEXIUM [Concomitant]
     Active Substance: ESOMEPRAZOLE
  9. RAMIPRIL. [Concomitant]
     Active Substance: RAMIPRIL
     Dates: start: 20160123
  10. HEPARIN [Concomitant]
     Active Substance: HEPARIN SODIUM
     Dates: start: 20160114

REACTIONS (1)
  - Erythema [Recovered/Resolved]

NARRATIVE: CASE EVENT DATE: 20160117
